FAERS Safety Report 8379829-3 (Version None)
Quarter: 2012Q1

REPORT INFORMATION
  Report Type: 
  Country: None (occurrence: None)
  Receive Date: 20120323
  Receipt Date: 20110719
  Transmission Date: 20120608
  Serious: Yes (Other)
  Sender: FDA-Public Use
  Company Number: 163-21880-11032652

PATIENT
  Age: 83 Year
  Sex: Female
  Weight: 39.5537 kg

DRUGS (1)
  1. REVLIMID [Suspect]
     Indication: MULTIPLE MYELOMA
     Dosage: 5 MG, 1 IN 1 D, PO
     Route: 048
     Dates: start: 20081231, end: 20100329

REACTIONS (2)
  - PLATELET COUNT DECREASED [None]
  - INCREASED TENDENCY TO BRUISE [None]
